FAERS Safety Report 4434295-5 (Version None)
Quarter: 2004Q3

REPORT INFORMATION
  Report Type: 
  Country: None (occurrence: None)
  Receive Date: 20040825
  Receipt Date: 20040812
  Transmission Date: 20050211
  Serious: Yes (Hospitalization)
  Sender: FDA-Public Use
  Company Number: 2004056277

PATIENT
  Age: 51 Year
  Sex: Female
  Weight: 56 kg

DRUGS (5)
  1. NEURONTIN [Suspect]
     Indication: NEUROPATHY PERIPHERAL
     Dosage: 100 MG, ORAL
     Route: 048
     Dates: start: 20040421, end: 20040614
  2. PYRIDOXINE HCL [Suspect]
     Indication: ILL-DEFINED DISORDER
     Dosage: 750 MG (25- MG, TID)
     Dates: start: 20040421
  3. ONDANSETRON HCL [Suspect]
     Indication: NAUSEA
  4. DOCETAXEL (DOCETAXEL) [Suspect]
     Indication: NEOPLASM MALIGNANT
     Dosage: 110 MG (CYCLIC), INTRAVENOUS
     Route: 042
     Dates: start: 20040419
  5. DOXORUBICIN HCL [Suspect]
     Indication: NEOPLASM MALIGNANT
     Dosage: 70 MG (CYCLIC), INTRAVENOUS
     Route: 042
     Dates: start: 20040419

REACTIONS (11)
  - ACUTE GENERALISED EXANTHEMATOUS PUSTULOSIS [None]
  - APHTHOUS STOMATITIS [None]
  - CLOSTRIDIAL INFECTION [None]
  - ENTEROBACTER INFECTION [None]
  - GENERAL PHYSICAL HEALTH DETERIORATION [None]
  - INFLAMMATION [None]
  - OEDEMA PERIPHERAL [None]
  - PAIN IN EXTREMITY [None]
  - RASH ERYTHEMATOUS [None]
  - SKIN LESION [None]
  - STAPHYLOCOCCAL INFECTION [None]
